FAERS Safety Report 4727264-9 (Version None)
Quarter: 2005Q3

REPORT INFORMATION
  Report Type: 
  Country: None (occurrence: None)
  Receive Date: 20050728
  Receipt Date: 20050508
  Transmission Date: 20060218
  Serious: Yes (Hospitalization)
  Sender: FDA-Public Use
  Company Number: CN-GLAXOSMITHKLINE-B0380168A

PATIENT
  Age: 71 Year
  Sex: Male
  Weight: 70 kg

DRUGS (1)
  1. SALMETEROL/FLUTICASONE PROPIONATE 50/500UG [Suspect]
     Indication: CHRONIC OBSTRUCTIVE PULMONARY DISEASE
     Dosage: 1BLS TWICE PER DAY
     Route: 055
     Dates: start: 20040923

REACTIONS (4)
  - COLD EXPOSURE INJURY [None]
  - PNEUMONIA [None]
  - PULMONARY TUBERCULOSIS [None]
  - PYREXIA [None]
